FAERS Safety Report 8889872 (Version 2)
Quarter: 2012Q4

REPORT INFORMATION
  Report Type: 
  Country: US (occurrence: US)
  Receive Date: 20121107
  Receipt Date: 20121110
  Transmission Date: 20130627
  Serious: No
  Sender: FDA-Public Use
  Company Number: US-009507513-1210USA012919

PATIENT
  Sex: Female

DRUGS (1)
  1. NEXPLANON [Suspect]
     Indication: CONTRACEPTION
     Dosage: 1 standard package of PF APPLI of 1

REACTIONS (4)
  - Device malfunction [Unknown]
  - Complication of device insertion [Unknown]
  - Complication of device insertion [Unknown]
  - No adverse event [Unknown]
